FAERS Safety Report 11338401 (Version 1)
Quarter: 2015Q3

REPORT INFORMATION
  Report Type: Spontaneous
  Country: US (occurrence: US)
  Receive Date: 20150803
  Receipt Date: 20150803
  Transmission Date: 20151125
  Serious: No
  Sender: FDA-Public Use
  Company Number: US-ELI_LILLY_AND_COMPANY-US200708001865

PATIENT
  Age: 10 Year
  Sex: Male

DRUGS (2)
  1. STRATTERA [Suspect]
     Active Substance: ATOMOXETINE HYDROCHLORIDE
     Dosage: 25 MG, EACH EVENING
     Route: 048
     Dates: start: 2007
  2. STRATTERA [Suspect]
     Active Substance: ATOMOXETINE HYDROCHLORIDE
     Indication: ATTENTION DEFICIT/HYPERACTIVITY DISORDER
     Dosage: 18 MG, EACH EVENING
     Route: 048
     Dates: start: 20070716, end: 2007

REACTIONS (4)
  - Initial insomnia [Unknown]
  - Increased appetite [Unknown]
  - Terminal insomnia [Unknown]
  - Insomnia [Unknown]

NARRATIVE: CASE EVENT DATE: 200708
